FAERS Safety Report 25904800 (Version 1)
Quarter: 2025Q4

REPORT INFORMATION
  Report Type: Spontaneous
  Country: CN (occurrence: CN)
  Receive Date: 20251010
  Receipt Date: 20251010
  Transmission Date: 20260119
  Serious: Yes (Other)
  Sender: AZURITY PHARMACEUTICALS
  Company Number: CN-AZURITY PHARMACEUTICALS, INC.-AZR202509-003084

PATIENT
  Age: 79 Year
  Sex: Male
  Weight: 55 kg

DRUGS (8)
  1. EDARBI [Suspect]
     Active Substance: AZILSARTAN KAMEDOXOMIL
     Indication: Angina unstable
     Dosage: 80 MILLIGRAM, QD
     Route: 048
     Dates: start: 20250919, end: 20250919
  2. IRBESARTAN [Suspect]
     Active Substance: IRBESARTAN
     Indication: Angina unstable
     Dosage: 75 MILLIGRAM, QD
     Route: 048
     Dates: start: 20250920, end: 20250921
  3. DILTIAZEM HYDROCHLORIDE [Suspect]
     Active Substance: DILTIAZEM HYDROCHLORIDE
     Indication: Angina unstable
     Dosage: 60 MILLIGRAM, BID
     Route: 048
     Dates: start: 20250919, end: 20250921
  4. XARELTO [Concomitant]
     Active Substance: RIVAROXABAN
     Indication: Angina unstable
     Dosage: UNK
     Route: 065
     Dates: start: 20250919, end: 20250923
  5. Yi mai ge [Concomitant]
     Indication: Angina unstable
     Dosage: UNK
     Route: 065
     Dates: start: 20250919, end: 20250925
  6. SODIUM CHLORIDE [Concomitant]
     Active Substance: SODIUM CHLORIDE
     Indication: Menstrual disorder
     Dosage: UNK
     Route: 065
     Dates: start: 20250919, end: 20250925
  7. SPIRONOLACTONE [Concomitant]
     Active Substance: SPIRONOLACTONE
     Indication: Angina unstable
     Dosage: UNK
     Route: 065
     Dates: start: 20250919, end: 20250925
  8. POTASSIUM ASPARTATE [Concomitant]
     Active Substance: POTASSIUM ASPARTATE
     Indication: Angina unstable
     Dosage: UNK
     Route: 065
     Dates: start: 20250919, end: 20250925

REACTIONS (1)
  - Shock [Recovering/Resolving]

NARRATIVE: CASE EVENT DATE: 20250921
